FAERS Safety Report 25818991 (Version 3)
Quarter: 2025Q4

REPORT INFORMATION
  Report Type: Report from Study
  Country: EU (occurrence: EU)
  Receive Date: 20250918
  Receipt Date: 20251126
  Transmission Date: 20260118
  Serious: Yes (Death, Hospitalization, Other)
  Sender: GILEAD
  Company Number: EU-GILEAD-2025-0728399

PATIENT
  Age: 58 Year
  Sex: Female

DRUGS (1)
  1. AXICABTAGENE CILOLEUCEL [Suspect]
     Active Substance: AXICABTAGENE CILOLEUCEL
     Indication: Follicular lymphoma refractory
     Dosage: UNK
     Route: 065

REACTIONS (5)
  - Acute myeloid leukaemia [Fatal]
  - Pancytopenia [Not Recovered/Not Resolved]
  - Cytokine release syndrome [Unknown]
  - Bronchopulmonary aspergillosis [Unknown]
  - Influenza [Unknown]
